FAERS Safety Report 22096162 (Version 2)
Quarter: 2023Q1

REPORT INFORMATION
  Report Type: Spontaneous
  Country: DE (occurrence: DE)
  Receive Date: 20230315
  Receipt Date: 20230323
  Transmission Date: 20230418
  Serious: Yes (Other)
  Sender: FDA-Public Use
  Company Number: None

PATIENT
  Sex: Female
  Weight: 74 kg

DRUGS (5)
  1. EZETIMIBE [Suspect]
     Active Substance: EZETIMIBE
     Indication: Low density lipoprotein
     Dosage: UNKNOWN
     Route: 065
     Dates: start: 201802, end: 201803
  2. PRAVASTATIN [Suspect]
     Active Substance: PRAVASTATIN
     Indication: Low density lipoprotein
     Dosage: 10 MG
     Route: 065
     Dates: start: 201709, end: 201710
  3. ROSUVASTATIN [Suspect]
     Active Substance: ROSUVASTATIN
     Indication: Low density lipoprotein
     Dosage: 5 MG
     Route: 065
     Dates: start: 201812, end: 201903
  4. SIMVASTATIN [Suspect]
     Active Substance: SIMVASTATIN
     Indication: Low density lipoprotein
     Dosage: 10 MG
     Route: 065
     Dates: start: 201711, end: 201711
  5. BEMPEDOIC ACID [Suspect]
     Active Substance: BEMPEDOIC ACID
     Indication: Low density lipoprotein
     Dosage: 180 MG
     Route: 065
     Dates: start: 202110, end: 202110

REACTIONS (4)
  - Myalgia [Recovered/Resolved]
  - Muscular weakness [Recovered/Resolved]
  - Angina pectoris [Recovered/Resolved]
  - Arthralgia [Recovered/Resolved]
